FAERS Safety Report 16309050 (Version 1)
Quarter: 2019Q2

REPORT INFORMATION
  Report Type: Spontaneous
  Country: US (occurrence: US)
  Receive Date: 20190514
  Receipt Date: 20190514
  Transmission Date: 20190711
  Serious: No
  Sender: FDA-Public Use
  Company Number: US-PFIZER INC-2019202079

PATIENT
  Age: 53 Year
  Sex: Female

DRUGS (3)
  1. SIMVASTATIN. [Suspect]
     Active Substance: SIMVASTATIN
     Indication: LIPIDS ABNORMAL
     Dosage: UNK
  2. VASCEPA [Suspect]
     Active Substance: ICOSAPENT ETHYL
     Indication: LIPIDS ABNORMAL
     Dosage: UNK
  3. ATORVASTATIN CALCIUM. [Suspect]
     Active Substance: ATORVASTATIN CALCIUM
     Indication: LIPIDS ABNORMAL
     Dosage: UNK

REACTIONS (2)
  - Drug ineffective [Unknown]
  - Drug intolerance [Unknown]
